FAERS Safety Report 4818411-9 (Version None)
Quarter: 2005Q3

REPORT INFORMATION
  Report Type: 
  Country: None (occurrence: None)
  Receive Date: 20050929
  Receipt Date: 20050714
  Transmission Date: 20060218
  Serious: No
  Sender: FDA-Public Use
  Company Number: 05P-163-0305723-00

PATIENT
  Age: 55 Year
  Sex: Female
  Weight: 56.246 kg

DRUGS (8)
  1. HUMIRA [Suspect]
     Indication: RHEUMATOID ARTHRITIS
     Dosage: 40 MG, 1 IN 1 WK, SUBCUTANEOUS
     Route: 058
     Dates: start: 20040401
  2. FOLIC ACID [Concomitant]
  3. TIAGABINE HYDROCHLORIDE [Concomitant]
  4. CLORAZEPATE DIPOTASSIUM [Concomitant]
  5. BUPROPION HYDROCHLORIDE [Concomitant]
  6. CALCIUM CARBONATE [Concomitant]
  7. ALENDRONATE SODIUM [Concomitant]
  8. DIURETICS [Concomitant]

REACTIONS (4)
  - APHASIA [None]
  - EAR INFECTION [None]
  - MALAISE [None]
  - ORAL FUNGAL INFECTION [None]
